FAERS Safety Report 7458075-1 (Version None)
Quarter: 2011Q2

REPORT INFORMATION
  Report Type: 
  Country: None (occurrence: None)
  Receive Date: 20110504
  Receipt Date: 20110428
  Transmission Date: 20111010
  Serious: Yes (Death)
  Sender: FDA-Public Use
  Company Number: JP-GENZYME-THYM-1001845

PATIENT
  Sex: Female
  Weight: 58 kg

DRUGS (7)
  1. THYMOGLOBULIN [Suspect]
     Indication: APLASTIC ANAEMIA
     Dosage: 213 MG, QD
     Route: 042
     Dates: start: 20100707, end: 20100711
  2. CYCLOSPORINE [Concomitant]
     Indication: APLASTIC ANAEMIA
     Dosage: UNK
     Route: 065
     Dates: start: 20100708, end: 20100804
  3. SULFAMETHOXAZOLE W [Concomitant]
     Indication: INFECTION PROPHYLAXIS
     Dosage: UNK
     Route: 065
     Dates: start: 20100709, end: 20100726
  4. FILGRASTIM [Concomitant]
     Dosage: UNK
     Route: 065
     Dates: start: 20100728, end: 20100804
  5. PREDNISOLONE [Concomitant]
     Indication: ALLERGY PROPHYLAXIS
     Dosage: UNK
     Route: 065
     Dates: start: 20100723, end: 20100804
  6. METHYLPREDNISOLONE SODIUM SUCCINATE [Concomitant]
     Indication: ALLERGY PROPHYLAXIS
     Dosage: UNK
     Route: 065
     Dates: start: 20100707, end: 20100711
  7. FILGRASTIM [Concomitant]
     Indication: PROPHYLAXIS
     Dosage: UNK
     Route: 065
     Dates: start: 20100709, end: 20100719

REACTIONS (3)
  - CEREBRAL HAEMORRHAGE [None]
  - LIVER DISORDER [None]
  - CYTOMEGALOVIRUS INFECTION [None]
